FAERS Safety Report 5459474-X (Version None)
Quarter: 2007Q3

REPORT INFORMATION
  Report Type: 
  Country: None (occurrence: None)
  Receive Date: 20070919
  Receipt Date: 20070917
  Transmission Date: 20080115
  Serious: Yes (Disabling, Other)
  Sender: FDA-Public Use
  Company Number: A0653193A

PATIENT
  Age: 4 Year
  Sex: Male
  Weight: 15 kg

DRUGS (3)
  1. ADVAIR DISKUS 100/50 [Suspect]
     Indication: ASTHMA
     Dosage: 1PUFF TWICE PER DAY
     Route: 055
     Dates: start: 20051101, end: 20070501
  2. ZYRTEC [Concomitant]
  3. SINGULAIR [Concomitant]

REACTIONS (7)
  - BONE DENSITY DECREASED [None]
  - BONE PAIN [None]
  - FACIAL BONES FRACTURE [None]
  - FRACTURE [None]
  - JOINT RANGE OF MOTION DECREASED [None]
  - RADIUS FRACTURE [None]
  - ULNA FRACTURE [None]
